FAERS Safety Report 6403306-X (Version None)
Quarter: 2009Q4

REPORT INFORMATION
  Report Type: 
  Country: None (occurrence: None)
  Receive Date: 20091016
  Receipt Date: 20090218
  Transmission Date: 20100525
  Serious: No
  Sender: FDA-Public Use
  Company Number: A0769315A

PATIENT
  Age: 64 Year
  Sex: Male

DRUGS (3)
  1. CEFTIN [Suspect]
     Dosage: 250MG TWICE PER DAY
     Route: 048
     Dates: start: 20090210
  2. FLOVENT [Concomitant]
  3. NASONEX [Concomitant]

REACTIONS (2)
  - DISORIENTATION [None]
  - VISION BLURRED [None]
